FAERS Safety Report 19007264 (Version 1)
Quarter: 2021Q1

REPORT INFORMATION
  Report Type: Spontaneous
  Country: US (occurrence: US)
  Receive Date: 20210315
  Receipt Date: 20210315
  Transmission Date: 20210420
  Serious: Yes (Hospitalization, Other)
  Sender: FDA-Public Use
  Company Number: None

PATIENT
  Age: 43 Year
  Sex: Female
  Weight: 58.1 kg

DRUGS (2)
  1. RIFAXIMIN. [Suspect]
     Active Substance: RIFAXIMIN
     Indication: HYPERAMMONAEMIA
     Route: 048
     Dates: start: 20210216, end: 20210222
  2. RIFAXIMIN. [Suspect]
     Active Substance: RIFAXIMIN
     Indication: METABOLIC ENCEPHALOPATHY
     Route: 048
     Dates: start: 20210216, end: 20210222

REACTIONS (6)
  - Petechiae [None]
  - Skin exfoliation [None]
  - Application site erosion [None]
  - Wound treatment [None]
  - Skin fragility [None]
  - Thrombocytopenia [None]

NARRATIVE: CASE EVENT DATE: 20210302
